FAERS Safety Report 18221159 (Version 2)
Quarter: 2020Q3

REPORT INFORMATION
  Report Type: Spontaneous
  Country: US (occurrence: US)
  Receive Date: 20200902
  Receipt Date: 20200915
  Transmission Date: 20201103
  Serious: Yes (Other)
  Sender: FDA-Public Use
  Company Number: US-PFIZER INC-2020336310

PATIENT
  Age: 28 Year
  Sex: Female

DRUGS (2)
  1. RESTORIL [Interacting]
     Active Substance: TEMAZEPAM
     Indication: INSOMNIA
     Dosage: 30 MG (ONE CAPSULE)/AT MIDNIGHT
     Route: 048
  2. BENADRYL [Suspect]
     Active Substance: DIPHENHYDRAMINE HYDROCHLORIDE
     Indication: PRURITUS
     Dosage: 50 MG (1 1/2HOURS EARLIER)
     Route: 048

REACTIONS (2)
  - Drug interaction [Unknown]
  - Stillbirth [Unknown]
